FAERS Safety Report 7619612-7 (Version None)
Quarter: 2011Q3

REPORT INFORMATION
  Report Type: 
  Country: None (occurrence: None)
  Receive Date: 20110719
  Receipt Date: 20090930
  Transmission Date: 20111222
  Serious: Yes (Hospitalization, Other)
  Sender: FDA-Public Use
  Company Number: US-BAYER-200940959NA

PATIENT
  Age: 47 Year
  Sex: Male
  Weight: 106 kg

DRUGS (13)
  1. POTASSIUM CHLORIDE [Concomitant]
     Dosage: 20 MEQ, UNK
     Route: 048
  2. BUMETANIDE [Concomitant]
     Dosage: 2 MG, UNK
     Route: 048
  3. HEPARIN [Concomitant]
     Dosage: 45000 U, UNK
     Route: 042
     Dates: start: 20060623, end: 20060623
  4. DIGOXIN [Concomitant]
     Dosage: 0.125 MG, UNK
     Route: 048
  5. AMICAR [Concomitant]
     Dosage: 250 MG/ML, 20ML
     Route: 042
     Dates: start: 20060623, end: 20060623
  6. OMNIPAQUE 140 [Concomitant]
     Indication: CATHETERISATION CARDIAC
     Dosage: 150 ML, UNK
     Route: 042
     Dates: start: 20060621, end: 20060621
  7. TRASYLOL [Suspect]
     Indication: PRODUCT USED FOR UNKNOWN INDICATION
     Dosage: UNK
     Dates: start: 20060123
  8. AVELOX [Concomitant]
     Dosage: 400 MG, UNK
     Route: 048
  9. TRASYLOL [Suspect]
     Indication: AORTIC SURGERY
  10. AMIODARONE HCL [Concomitant]
     Dosage: 1 MG/M2, UNK
     Route: 042
     Dates: start: 20060623, end: 20060623
  11. ANCEF [Concomitant]
     Dosage: 1 G, UNK
     Route: 042
     Dates: start: 20060623, end: 20060623
  12. AMOXICILLIN [Concomitant]
     Dosage: 500 MG, UNK
     Route: 048
  13. FUROSEMIDE [Concomitant]
     Dosage: 20 MG, UNK
     Route: 048

REACTIONS (11)
  - ANXIETY [None]
  - RENAL INJURY [None]
  - INJURY [None]
  - FEAR [None]
  - MULTI-ORGAN FAILURE [None]
  - UNEVALUABLE EVENT [None]
  - DEPRESSION [None]
  - DISABILITY [None]
  - PAIN [None]
  - RENAL FAILURE [None]
  - ANHEDONIA [None]
